FAERS Safety Report 9713801 (Version 1)
Quarter: 2013Q4

REPORT INFORMATION
  Report Type: Spontaneous
  Country: US (occurrence: None)
  Receive Date: 20131126
  Receipt Date: 20131126
  Transmission Date: 20140711
  Serious: Yes (Death)
  Sender: FDA-Public Use
  Company Number: None

PATIENT
  Age: 87 Year
  Sex: Male
  Weight: 77.11 kg

DRUGS (9)
  1. RANEXA [Suspect]
     Indication: ANGINA PECTORIS
     Dosage: 1 TABLET
     Route: 048
     Dates: start: 20131119, end: 20131119
  2. METOPROLOL [Concomitant]
  3. HYDRALAZINE [Concomitant]
  4. LOSARTAN [Concomitant]
  5. ISOSORBIDE MONONITRATE [Concomitant]
  6. PANTOPRAZOLE [Concomitant]
  7. SPIRONOLACTONE [Concomitant]
  8. OMEGA 3 FISH OIL [Concomitant]
  9. CENTRUM SILVER [Concomitant]

REACTIONS (3)
  - Muscle spasms [None]
  - Asthenia [None]
  - Cardiac arrest [None]
